FAERS Safety Report 11964220 (Version 1)
Quarter: 2016Q1

REPORT INFORMATION
  Report Type: Report from Study
  Country: US (occurrence: US)
  Receive Date: 20160126
  Receipt Date: 20160126
  Transmission Date: 20160526
  Serious: No
  Sender: FDA-Public Use
  Company Number: US-ABBVIE-15K-163-1380252-00

PATIENT
  Sex: Male
  Weight: 104.42 kg

DRUGS (4)
  1. ANTIVERT [Suspect]
     Active Substance: MECLIZINE HYDROCHLORIDE
     Indication: VERTIGO
     Route: 065
     Dates: start: 201502, end: 201502
  2. XANAX [Concomitant]
     Active Substance: ALPRAZOLAM
     Indication: PRODUCT USED FOR UNKNOWN INDICATION
  3. HUMIRA [Suspect]
     Active Substance: ADALIMUMAB
     Indication: PSORIATIC ARTHROPATHY
     Route: 058
     Dates: start: 2011, end: 20150105
  4. ATENOLOL. [Concomitant]
     Active Substance: ATENOLOL
     Indication: ARRHYTHMIA

REACTIONS (9)
  - Balance disorder [Recovering/Resolving]
  - Nausea [Recovered/Resolved]
  - Vestibular neuronitis [Recovering/Resolving]
  - Myelitis [Recovering/Resolving]
  - Nausea [Unknown]
  - Impaired driving ability [Recovering/Resolving]
  - Dizziness [Recovered/Resolved]
  - Gait disturbance [Recovering/Resolving]
  - Headache [Not Recovered/Not Resolved]

NARRATIVE: CASE EVENT DATE: 2015
